FAERS Safety Report 5849015-7 (Version None)
Quarter: 2008Q3

REPORT INFORMATION
  Report Type: 
  Country: None (occurrence: None)
  Receive Date: 20080815
  Receipt Date: 20080804
  Transmission Date: 20090109
  Serious: Yes (Hospitalization)
  Sender: FDA-Public Use
  Company Number: DSA_32253_2008

PATIENT
  Age: 67 Year
  Sex: Male

DRUGS (5)
  1. ENALAPRIL MALEATE AND HYDROCHLOROTHIAZIDE [Suspect]
     Indication: ATRIAL FLUTTER
     Dosage: (20-12.5 MG DAILY ORAL)
     Route: 048
     Dates: start: 20060101, end: 20080301
  2. ATORVASTATIN CALCIUM [Concomitant]
  3. EPOETIN BETA [Concomitant]
  4. FOLIC ACID [Concomitant]
  5. THALIDOMIDE [Concomitant]

REACTIONS (2)
  - HAEMOLYTIC ANAEMIA [None]
  - PLATELET COUNT DECREASED [None]
